FAERS Safety Report 7426894-3 (Version None)
Quarter: 2011Q2

REPORT INFORMATION
  Report Type: 
  Country: None (occurrence: None)
  Receive Date: 20110413
  Receipt Date: 20110330
  Transmission Date: 20111010
  Serious: Yes (Other)
  Sender: FDA-Public Use
  Company Number: 2011BN000036

PATIENT
  Age: 75 Year
  Sex: Male

DRUGS (4)
  1. DACTINOMYCIN [Concomitant]
  2. MELPHALAN [Concomitant]
  3. SORAFENIB [Suspect]
     Indication: METASTATIC MALIGNANT MELANOMA
     Dosage: 200 MG; BID; PO
     Route: 048
  4. MELPHALAN HYDROCHLORIDE [Suspect]
     Indication: METASTATIC MALIGNANT MELANOMA
     Dosage: ; 1X;

REACTIONS (2)
  - SQUAMOUS CELL CARCINOMA [None]
  - METASTATIC MALIGNANT MELANOMA [None]
